FAERS Safety Report 8564610-2 (Version None)
Quarter: 2012Q3

REPORT INFORMATION
  Report Type: 
  Country: None (occurrence: None)
  Receive Date: 20120803
  Receipt Date: 20120727
  Transmission Date: 20120928
  Serious: Yes (Other)
  Sender: FDA-Public Use
  Company Number: FR-PFIZER INC-2012183552

PATIENT
  Age: 78 Year
  Sex: Male

DRUGS (9)
  1. IRINOTECAN HYDROCHLORIDE [Suspect]
     Dosage: 1ST COURSE
     Dates: start: 20120402
  2. FOLINIC ACID [Concomitant]
     Dosage: 1ST COURSE
     Dates: start: 20120402
  3. FLUOROURACIL [Concomitant]
     Dosage: 3RD COURSE
     Dates: start: 20120430
  4. FLUOROURACIL [Concomitant]
     Dosage: 1ST COURSE
     Dates: start: 20120402
  5. FLUOROURACIL [Concomitant]
     Dosage: 2ND COURSE
     Dates: start: 20120416
  6. IRINOTECAN HYDROCHLORIDE [Suspect]
     Dosage: 2ND COURSE
     Dates: start: 20120416
  7. FOLINIC ACID [Concomitant]
     Dosage: 3RD COURSE
     Dates: start: 20120430
  8. IRINOTECAN HYDROCHLORIDE [Suspect]
     Dosage: 3RD COURSE
     Dates: start: 20120430
  9. FOLINIC ACID [Concomitant]
     Dosage: 2ND COURSE
     Dates: start: 20120416

REACTIONS (1)
  - HEPATITIS CHOLESTATIC [None]
